FAERS Safety Report 4267508-3 (Version None)
Quarter: 2004Q1

REPORT INFORMATION
  Report Type: 
  Country: None (occurrence: None)
  Receive Date: 20040109
  Receipt Date: 20030630
  Transmission Date: 20041129
  Serious: No
  Sender: FDA-Public Use
  Company Number: US-GLAXOSMITHKLINE-A0414556A

PATIENT
  Age: 27 Year
  Sex: Female

DRUGS (2)
  1. WELLBUTRIN [Suspect]
     Route: 048
  2. BIRTH CONTROL [Concomitant]
     Route: 048

REACTIONS (1)
  - DRUG INEFFECTIVE [None]
